FAERS Safety Report 6098852-5 (Version None)
Quarter: 2009Q1

REPORT INFORMATION
  Report Type: 
  Country: None (occurrence: None)
  Receive Date: 20090302
  Receipt Date: 20090227
  Transmission Date: 20090719
  Serious: Yes (Hospitalization)
  Sender: FDA-Public Use
  Company Number: A0770752A

PATIENT
  Age: 63 Year
  Sex: Male

DRUGS (7)
  1. ISRADIPINE [Suspect]
     Indication: DRUG USE FOR UNKNOWN INDICATION
     Dosage: 2.6MG PER DAY
     Route: 048
  2. PRAVASTATIN [Suspect]
     Indication: DRUG USE FOR UNKNOWN INDICATION
     Route: 048
  3. PROGRAF [Concomitant]
     Indication: HEART TRANSPLANT
  4. CELLCEPT [Concomitant]
  5. SOLUPRED [Concomitant]
  6. EUPHYLLINE [Concomitant]
  7. POTASSIUM CHLORIDE [Concomitant]

REACTIONS (7)
  - BRONCHITIS [None]
  - DIARRHOEA [None]
  - GENERAL PHYSICAL HEALTH DETERIORATION [None]
  - GOUT [None]
  - RENAL FAILURE ACUTE [None]
  - THROMBOTIC MICROANGIOPATHY [None]
  - VOMITING [None]
